FAERS Safety Report 9116030 (Version 1)
Quarter: 2013Q1

REPORT INFORMATION
  Report Type: Spontaneous
  Country: CA (occurrence: CA)
  Receive Date: 20130225
  Receipt Date: 20130225
  Transmission Date: 20140127
  Serious: Yes (Other)
  Sender: FDA-Public Use
  Company Number: CA-PURDUE-CAN-2013-0003791

PATIENT
  Age: 31 Year
  Sex: Male

DRUGS (2)
  1. OXYCODONE [Suspect]
     Indication: PRODUCT USED FOR UNKNOWN INDICATION
  2. ANTIDEPRESSANTS [Suspect]
     Indication: PRODUCT USED FOR UNKNOWN INDICATION

REACTIONS (11)
  - Substance abuse [Unknown]
  - Aggression [Unknown]
  - Hallucination [Unknown]
  - Mental impairment [Unknown]
  - Abnormal behaviour [Unknown]
  - Social avoidant behaviour [Unknown]
  - Anger [Unknown]
  - Hyperhidrosis [Unknown]
  - Aphasia [Unknown]
  - Somnolence [Unknown]
  - Fear [Unknown]
